FAERS Safety Report 22898340 (Version 2)
Quarter: 2023Q4

REPORT INFORMATION
  Report Type: Spontaneous
  Country: DE (occurrence: DE)
  Receive Date: 20230903
  Receipt Date: 20231207
  Transmission Date: 20240109
  Serious: Yes (Other)
  Sender: FDA-Public Use
  Company Number: DE-BRISTOL-MYERS SQUIBB COMPANY-2023-118164

PATIENT
  Age: 68 Year
  Sex: Female
  Weight: 85 kg

DRUGS (6)
  1. OPDIVO [Suspect]
     Active Substance: NIVOLUMAB
     Indication: Metastatic renal cell carcinoma
     Dosage: 3 APPLICATIONS: 23-MAY-2023,? 14-JUN-2023, 05-JUL-2023
     Dates: start: 20230523
  2. OPDIVO [Suspect]
     Active Substance: NIVOLUMAB
     Dosage: 3 APPLICATIONS: 23-MAY-2023,? 14-JUN-2023, 05-JUL-2023
     Dates: start: 20230614
  3. OPDIVO [Suspect]
     Active Substance: NIVOLUMAB
     Dosage: 3 APPLICATIONS: 23-MAY-2023,? 14-JUN-2023, 05-JUL-2023
     Dates: start: 20230705
  4. YERVOY [Suspect]
     Active Substance: IPILIMUMAB
     Indication: Metastatic renal cell carcinoma
     Dosage: 3 APPLICATIONS: 23-MAY-2023, 14-JUN-2023, 05-JUL-2023, (1 MG/KG = 80 MG)
     Dates: start: 20230523
  5. YERVOY [Suspect]
     Active Substance: IPILIMUMAB
     Dosage: 3 APPLICATIONS: 23-MAY-2023, 14-JUN-2023, 05-JUL-2023, (1 MG/KG = 80 MG)
     Dates: start: 20230614
  6. YERVOY [Suspect]
     Active Substance: IPILIMUMAB
     Dosage: 3 APPLICATIONS: 23-MAY-2023, 14-JUN-2023, 05-JUL-2023, (1 MG/KG = 80 MG)
     Dates: start: 20230705

REACTIONS (12)
  - Headache [Unknown]
  - Nausea [Unknown]
  - Gastrointestinal disorder [Unknown]
  - Body temperature increased [Unknown]
  - Vomiting [Unknown]
  - Pruritus [Unknown]
  - Paraesthesia [Unknown]
  - Haemoglobin decreased [Unknown]
  - General physical health deterioration [Unknown]
  - Deafness [Not Recovered/Not Resolved]
  - Weight decreased [Unknown]
  - Prescribed underdose [Unknown]

NARRATIVE: CASE EVENT DATE: 20230531
